FAERS Safety Report 5311589-2 (Version None)
Quarter: 2007Q2

REPORT INFORMATION
  Report Type: 
  Country: None (occurrence: None)
  Receive Date: 20070430
  Receipt Date: 20070417
  Transmission Date: 20071010
  Serious: Yes (Hospitalization)
  Sender: FDA-Public Use
  Company Number: FR-ROCHE-493600

PATIENT
  Sex: Female
  Weight: 80 kg

DRUGS (3)
  1. PEG-INTERFERON ALFA 2A (RO 25-8310) [Suspect]
     Dosage: FORMULATION: SYRINGE.
     Route: 058
     Dates: start: 20040109
  2. PEG-INTERFERON ALFA 2A (RO 25-8310) [Suspect]
     Route: 058
     Dates: start: 20040206, end: 20040705
  3. PEG-INTERFERON ALFA 2A (RO 25-8310) [Suspect]
     Route: 058
     Dates: start: 20040103, end: 20040716

REACTIONS (3)
  - ARTHRITIS [None]
  - CARPAL TUNNEL SYNDROME [None]
  - ERYSIPELAS [None]
